FAERS Safety Report 5010261-6 (Version None)
Quarter: 2006Q2

REPORT INFORMATION
  Report Type: 
  Country: None (occurrence: None)
  Receive Date: 20060404
  Receipt Date: 20051201
  Transmission Date: 20061013
  Serious: No
  Sender: FDA-Public Use
  Company Number: US200512000365

PATIENT
  Age: 61 Year
  Sex: Female

DRUGS (4)
  1. CYMBALTA [Suspect]
     Indication: POST HERPETIC NEURALGIA
     Dosage: 60 MG, DAILY (1/D)
     Dates: start: 20051130
  2. HYDROCODONE BITARTRATE [Concomitant]
  3. ZOLOFT [Concomitant]
  4. NEURONTIN [Concomitant]

REACTIONS (5)
  - INCREASED UPPER AIRWAY SECRETION [None]
  - NASAL CONGESTION [None]
  - PRODUCTIVE COUGH [None]
  - RETCHING [None]
  - SNEEZING [None]
